FAERS Safety Report 15747783 (Version 1)
Quarter: 2018Q4

REPORT INFORMATION
  Report Type: Spontaneous
  Country: US (occurrence: US)
  Receive Date: 20181221
  Receipt Date: 20181221
  Transmission Date: 20190205
  Serious: No
  Sender: FDA-Public Use
  Company Number: US-JNJFOC-20181205171

PATIENT
  Age: 23 Year
  Sex: Female
  Weight: 50.8 kg

DRUGS (1)
  1. TREMFYA [Suspect]
     Active Substance: GUSELKUMAB
     Indication: PSORIASIS
     Dosage: LOADING DOSE, 4 WEEKS AFTER FIRST DOSE AND THEN EVERY 8 WEEKS AFTER.
     Route: 058
     Dates: start: 20181101

REACTIONS (2)
  - Product storage error [Unknown]
  - Product dose omission [Not Recovered/Not Resolved]

NARRATIVE: CASE EVENT DATE: 201811
